FAERS Safety Report 6815007-4 (Version None)
Quarter: 2010Q3

REPORT INFORMATION
  Report Type: 
  Country: None (occurrence: None)
  Receive Date: 20100702
  Receipt Date: 20100628
  Transmission Date: 20110219
  Serious: Yes (Death)
  Sender: FDA-Public Use
  Company Number: US-GENENTECH-303650

PATIENT

DRUGS (2)
  1. ACTIVASE [Suspect]
     Indication: THROMBOSIS
     Dosage: 0.05 MG/K/H, UNK
     Route: 050
  2. HEPARIN [Concomitant]
     Indication: THROMBOSIS
     Dosage: 500 UNK, UNK
     Route: 050

REACTIONS (1)
  - DEATH [None]
